FAERS Safety Report 6000169-1 (Version None)
Quarter: 2008Q4

REPORT INFORMATION
  Report Type: 
  Country: None (occurrence: None)
  Receive Date: 20081211
  Receipt Date: 20081211
  Transmission Date: 20090506
  Serious: Yes (Other)
  Sender: FDA-Public Use
  Company Number: None

PATIENT
  Age: 60 Year
  Sex: Female
  Weight: 80.7403 kg

DRUGS (11)
  1. LIPITOR [Suspect]
     Indication: HYPERLIPIDAEMIA
     Dosage: 10MG DAILY ORAL
     Route: 048
     Dates: start: 20071218
  2. HYDROCHLOROTHIAZIDE [Concomitant]
  3. LEVOTHYROXINE SODIUM [Concomitant]
  4. POTASSIUM CHLORIDE [Concomitant]
  5. ASPIRIN [Concomitant]
  6. XANAX [Concomitant]
  7. EFFEXOR XR [Concomitant]
  8. VICODIN [Concomitant]
  9. AMBIEN [Concomitant]
  10. MAXALT [Concomitant]
  11. PREMARIN [Concomitant]

REACTIONS (2)
  - GLOBAL AMNESIA [None]
  - HEADACHE [None]
